FAERS Safety Report 9645864 (Version 1)
Quarter: 2013Q4

REPORT INFORMATION
  Report Type: Spontaneous
  Country: US (occurrence: None)
  Receive Date: 20131023
  Receipt Date: 20131023
  Transmission Date: 20140711
  Serious: Yes (Other)
  Sender: FDA-Public Use
  Company Number: CPI 5081

PATIENT
  Age: 48 Year
  Sex: Male

DRUGS (4)
  1. A-ACETYLCYSTEINE [Suspect]
     Indication: DRUG THERAPY
     Dates: start: 20121124
  2. ACTIVATED CHARCOAL [Concomitant]
  3. RENAL REPLACEMENT THERAPY AND FOMEPIZOLE [Concomitant]
  4. HYPOTHERMIA PROTOCOL [Concomitant]

REACTIONS (6)
  - Respiratory failure [None]
  - Multi-organ failure [None]
  - Metabolic acidosis [None]
  - Brain oedema [None]
  - Hypothermia [None]
  - Upper gastrointestinal haemorrhage [None]
